FAERS Safety Report 15019650 (Version 3)
Quarter: 2018Q3

REPORT INFORMATION
  Report Type: Spontaneous
  Country: US (occurrence: US)
  Receive Date: 20180618
  Receipt Date: 20180810
  Transmission Date: 20181010
  Serious: No
  Sender: FDA-Public Use
  Company Number: US-JNJFOC-20180607522

PATIENT
  Age: 75 Year
  Sex: Male
  Weight: 58.97 kg

DRUGS (10)
  1. MAGNESIUM [Concomitant]
     Active Substance: MAGNESIUM
     Route: 065
  2. INTELENCE [Suspect]
     Active Substance: ETRAVIRINE
     Indication: HIV INFECTION
     Dosage: FOR 5 DAYS
     Route: 048
     Dates: start: 20180531, end: 2018
  3. COENZYME Q10 [Concomitant]
     Active Substance: UBIDECARENONE
     Route: 065
  4. VITAMIN C [Concomitant]
     Active Substance: ASCORBIC ACID
     Route: 065
  5. ZINC. [Concomitant]
     Active Substance: ZINC
     Route: 065
  6. VIAGRA [Concomitant]
     Active Substance: SILDENAFIL CITRATE
     Route: 065
  7. IRON [Concomitant]
     Active Substance: IRON
     Route: 065
  8. CALCIUM [Concomitant]
     Active Substance: CALCIUM
     Route: 065
  9. POTASSIUM [Concomitant]
     Active Substance: POTASSIUM
     Route: 065
  10. SELZENTRY [Concomitant]
     Active Substance: MARAVIROC
     Route: 065

REACTIONS (8)
  - Hypokinesia [Recovering/Resolving]
  - Malaise [Unknown]
  - Nausea [Unknown]
  - Dizziness [Unknown]
  - Drug prescribing error [Unknown]
  - Memory impairment [Unknown]
  - Insomnia [Unknown]
  - Back pain [Unknown]

NARRATIVE: CASE EVENT DATE: 20180531
